FAERS Safety Report 23437468 (Version 3)
Quarter: 2024Q1

REPORT INFORMATION
  Report Type: Report from Study
  Country: US (occurrence: US)
  Receive Date: 20240124
  Receipt Date: 20240227
  Transmission Date: 20240410
  Serious: Yes (Other)
  Sender: FDA-Public Use
  Company Number: US-TAKEDA-2024TUS004516

PATIENT
  Sex: Male

DRUGS (1)
  1. VEDOLIZUMAB [Suspect]
     Active Substance: VEDOLIZUMAB
     Indication: Crohn^s disease
     Dosage: 300 MILLIGRAM
     Route: 042

REACTIONS (10)
  - Gastric haemorrhage [Unknown]
  - Crohn^s disease [Not Recovered/Not Resolved]
  - Joint swelling [Unknown]
  - Stress [Unknown]
  - Decreased immune responsiveness [Unknown]
  - Product dose omission issue [Unknown]
  - Inappropriate schedule of product administration [Not Recovered/Not Resolved]
  - Panic attack [Not Recovered/Not Resolved]
  - Therapeutic reaction time decreased [Unknown]
  - Arthralgia [Not Recovered/Not Resolved]
